FAERS Safety Report 5892785-2 (Version None)
Quarter: 2008Q3

REPORT INFORMATION
  Report Type: 
  Country: None (occurrence: None)
  Receive Date: 20080922
  Receipt Date: 20080922
  Transmission Date: 20090109
  Serious: Yes (Other)
  Sender: FDA-Public Use
  Company Number: None

PATIENT
  Sex: Female
  Weight: 67.1324 kg

DRUGS (2)
  1. ACTONEL [Suspect]
     Indication: BONE PAIN
     Dosage: 35MG 1 X WEEKLY PO
     Route: 048
     Dates: start: 20030501, end: 20080801
  2. ACTONEL [Suspect]
     Indication: MYALGIA
     Dosage: 35MG 1 X WEEKLY PO
     Route: 048
     Dates: start: 20030501, end: 20080801

REACTIONS (7)
  - ARTHRALGIA [None]
  - BONE PAIN [None]
  - GAIT DISTURBANCE [None]
  - INSOMNIA [None]
  - MALOCCLUSION [None]
  - MYALGIA [None]
  - NECK PAIN [None]
